FAERS Safety Report 5147257-X (Version None)
Quarter: 2006Q4

REPORT INFORMATION
  Report Type: 
  Country: None (occurrence: None)
  Receive Date: 20061103
  Receipt Date: 20061024
  Transmission Date: 20070319
  Serious: Yes (Other)
  Sender: FDA-Public Use
  Company Number: 229936

PATIENT
  Age: 76 Year
  Sex: Female
  Weight: 66.6 kg

DRUGS (2)
  1. AVASTIN [Suspect]
     Indication: BREAST CANCER METASTATIC
     Dosage: 10 MG/KG, Q2W, INTRAVENOUS
     Route: 042
     Dates: start: 20060720, end: 20060830
  2. HERCEPTIN [Concomitant]

REACTIONS (1)
  - CYSTITIS HAEMORRHAGIC [None]
